FAERS Safety Report 6563808-2 (Version None)
Quarter: 2010Q1

REPORT INFORMATION
  Report Type: 
  Country: None (occurrence: None)
  Receive Date: 20100130
  Receipt Date: 20091230
  Transmission Date: 20100710
  Serious: No
  Sender: FDA-Public Use
  Company Number: US-ABBOTT-09P-163-0617111-00

PATIENT
  Sex: Female
  Weight: 59.02 kg

DRUGS (3)
  1. HUMIRA [Suspect]
     Indication: ANKYLOSING SPONDYLITIS
     Dates: start: 20091214
  2. SYNTHROID [Concomitant]
     Indication: DRUG USE FOR UNKNOWN INDICATION
  3. APIDRA [Concomitant]
     Indication: DRUG USE FOR UNKNOWN INDICATION
     Dosage: PUMP ADMINISTRATION

REACTIONS (6)
  - HEADACHE [None]
  - INJECTION SITE ERYTHEMA [None]
  - INJECTION SITE PAIN [None]
  - INJECTION SITE WARMTH [None]
  - NAUSEA [None]
  - RASH MACULAR [None]
